FAERS Safety Report 4334555-2 (Version None)
Quarter: 2004Q2

REPORT INFORMATION
  Report Type: 
  Country: None (occurrence: None)
  Receive Date: 20040407
  Receipt Date: 20040317
  Transmission Date: 20050107
  Serious: Yes (Disabling)
  Sender: FDA-Public Use
  Company Number: DE-GLAXOSMITHKLINE-D0043429A

PATIENT
  Age: 27 Year
  Sex: Female
  Weight: 42 kg

DRUGS (4)
  1. ELMENDOS [Suspect]
     Indication: CYCLOTHYMIC DISORDER
     Dosage: 100MG PER DAY
     Route: 048
     Dates: start: 20030701
  2. CITALOPRAM [Concomitant]
     Indication: CYCLOTHYMIC DISORDER
     Dosage: 20MG PER DAY
     Route: 048
     Dates: start: 20040101, end: 20040201
  3. VENLAFAXINE [Concomitant]
     Indication: CYCLOTHYMIC DISORDER
     Dosage: 150MG PER DAY
     Route: 048
     Dates: end: 20031001
  4. MIRTAZAPINE [Concomitant]
     Indication: CYCLOTHYMIC DISORDER
     Dosage: 15MG PER DAY
     Route: 048
     Dates: start: 20031101, end: 20031201

REACTIONS (1)
  - ANOREXIA [None]
